FAERS Safety Report 22868063 (Version 2)
Quarter: 2023Q4

REPORT INFORMATION
  Report Type: Report from Study
  Country: IT (occurrence: IT)
  Receive Date: 20230825
  Receipt Date: 20231011
  Transmission Date: 20240110
  Serious: Yes (Hospitalization, Disabling)
  Sender: FDA-Public Use
  Company Number: IT-GENMAB-2023-01528

PATIENT
  Age: 72 Year
  Sex: Male
  Weight: 75 kg

DRUGS (51)
  1. EPCORITAMAB [Suspect]
     Active Substance: EPCORITAMAB
     Indication: Diffuse large B-cell lymphoma stage IV
     Dosage: C1D1
     Route: 058
     Dates: start: 20220518, end: 20220518
  2. EPCORITAMAB [Suspect]
     Active Substance: EPCORITAMAB
     Dosage: C1D8
     Route: 058
     Dates: start: 20220525, end: 20220525
  3. EPCORITAMAB [Suspect]
     Active Substance: EPCORITAMAB
     Dosage: C1D15
     Route: 058
     Dates: start: 20220601, end: 20220601
  4. CHLORPHENIRAMINE MALEATE [Concomitant]
     Active Substance: CHLORPHENIRAMINE MALEATE
     Indication: Premedication
     Dosage: 10 MILLIGRAM, SINGLE
     Route: 042
     Dates: start: 20220601, end: 20220601
  5. ACETAMINOPHEN [Concomitant]
     Active Substance: ACETAMINOPHEN
     Indication: Premedication
     Dosage: 1000 MILLIGRAM, SINGLE
     Route: 048
     Dates: start: 20220601, end: 20220601
  6. METHYLPREDNISOLONE [Concomitant]
     Active Substance: METHYLPREDNISOLONE
     Indication: Prophylaxis
     Dosage: 80 MILLIGRAM, QD
     Route: 042
     Dates: start: 20220518, end: 20220522
  7. METHYLPREDNISOLONE [Concomitant]
     Active Substance: METHYLPREDNISOLONE
     Dosage: 80 MILLIGRAM, QD
     Route: 042
     Dates: start: 20220525, end: 20220528
  8. METHYLPREDNISOLONE [Concomitant]
     Active Substance: METHYLPREDNISOLONE
     Dosage: 80 MILLIGRAM, QD
     Route: 042
     Dates: start: 20220601, end: 20220603
  9. DEXAMETHASONE [Concomitant]
     Active Substance: DEXAMETHASONE
     Indication: Diffuse large B-cell lymphoma stage IV
     Dosage: 4 MILLIGRAM, TWICE
     Route: 042
     Dates: start: 20220608, end: 20220613
  10. PREDNISONE [Concomitant]
     Active Substance: PREDNISONE
     Indication: Diffuse large B-cell lymphoma stage IV
     Dosage: 25 MILLIGRAM, QD
     Route: 048
     Dates: start: 20220529, end: 20220531
  11. ACYCLOVIR [Concomitant]
     Active Substance: ACYCLOVIR
     Indication: Prophylaxis
     Dosage: 400 MILLIGRAM, QD
     Route: 048
     Dates: start: 202205, end: 20220513
  12. ALBUMIN HUMAN [Concomitant]
     Active Substance: ALBUMIN HUMAN
     Indication: Prophylaxis
     Dosage: DOSE : 1 VIAL
     Route: 042
     Dates: start: 20220509, end: 20220613
  13. ALLOPURINOL [Concomitant]
     Active Substance: ALLOPURINOL
     Indication: Prophylaxis
     Dosage: 300 MILLIGRAM, QD
     Route: 048
     Dates: start: 20220508, end: 20220614
  14. AMPHOTERICIN B [Concomitant]
     Active Substance: AMPHOTERICIN B
     Indication: Escherichia infection
     Dosage: 100 MILLIGRAM, SINGLE
     Route: 042
     Dates: start: 20220531, end: 20220531
  15. AMPHOTERICIN B [Concomitant]
     Active Substance: AMPHOTERICIN B
     Dosage: 200 MILLIGRAM, QD
     Route: 042
     Dates: start: 20220601, end: 20220613
  16. ASCORBIC ACID;PARACETAMOL [Concomitant]
     Indication: Abdominal pain
     Dosage: 1 VIAL, QD
     Route: 042
     Dates: start: 20220516, end: 20220519
  17. ASCORBIC ACID;PARACETAMOL [Concomitant]
     Dosage: 1 VIAL, QD
     Route: 042
     Dates: start: 20220609, end: 20220616
  18. BROMAZEPAM [Concomitant]
     Active Substance: BROMAZEPAM
     Indication: Prophylaxis
     Dosage: 15 DROP, QD
     Route: 048
     Dates: start: 20220508, end: 20220518
  19. CANRENONE [Concomitant]
     Active Substance: CANRENONE
     Dosage: 1 VIAL, QD
     Route: 042
     Dates: start: 20220515, end: 20220520
  20. CANRENONE [Concomitant]
     Active Substance: CANRENONE
     Dosage: 1 VIAL, QD
     Route: 042
     Dates: start: 20220605, end: 20220611
  21. ACETAMINOPHEN\CODEINE PHOSPHATE [Concomitant]
     Active Substance: ACETAMINOPHEN\CODEINE PHOSPHATE
     Indication: Prophylaxis
     Dosage: 1 SACHET, 2 TIMES PER WEEK (BIW)
     Route: 048
     Dates: start: 20220517, end: 20220531
  22. DELORAZEPAM [Concomitant]
     Active Substance: DELORAZEPAM
     Indication: Prophylaxis
     Dosage: 20 DROP, QD
     Route: 048
     Dates: start: 20220519, end: 20220602
  23. ENOXAPARIN [Concomitant]
     Active Substance: ENOXAPARIN
     Indication: Prophylaxis
     Dosage: 4000 INTERNATIONAL UNIT, QD
     Route: 058
     Dates: start: 20220509, end: 20220528
  24. ENTECAVIR [Concomitant]
     Active Substance: ENTECAVIR
     Indication: Prophylaxis
     Dosage: 0.5 MILLIGRAM, QD
     Route: 048
     Dates: start: 20220509, end: 20220616
  25. FILGRASTIM [Concomitant]
     Active Substance: FILGRASTIM
     Indication: Prophylaxis
     Dosage: 30 INTERNATIONAL UNIT, QD
     Route: 058
     Dates: start: 20220601, end: 20220610
  26. FLUCONAZOLE [Concomitant]
     Active Substance: FLUCONAZOLE
     Indication: Prophylaxis
     Dosage: 100 MILLIGRAM, QD
     Route: 048
     Dates: start: 20220509, end: 20220531
  27. FOLIC ACID [Concomitant]
     Active Substance: FOLIC ACID
     Indication: Prophylaxis
     Dosage: 5 MILLIGRAM, QD
     Route: 048
     Dates: start: 20220510, end: 20220613
  28. FUROSEMIDE [Concomitant]
     Active Substance: FUROSEMIDE
     Dosage: 25 MILLIGRAM, PRN
     Route: 042
     Dates: start: 20220508, end: 20220615
  29. IMMUNE GLOBULIN NOS [Concomitant]
     Active Substance: IMMUNE GLOBULIN NOS
     Indication: Prophylaxis
     Dosage: 130 MILLIGRAM, SINGLE
     Route: 042
     Dates: start: 20220523, end: 20220523
  30. MEROPENEM [Concomitant]
     Active Substance: MEROPENEM
     Indication: Escherichia infection
     Dosage: 2 GRAM, TID
     Route: 042
     Dates: start: 20220530, end: 20220615
  31. METHYLPREDNISOLONE [Concomitant]
     Active Substance: METHYLPREDNISOLONE
     Indication: Diffuse large B-cell lymphoma stage IV
     Dosage: 60 MILLIGRAM, QD
     Route: 042
     Dates: start: 20220508, end: 20220513
  32. METHYLPREDNISOLONE [Concomitant]
     Active Substance: METHYLPREDNISOLONE
     Dosage: 125 MILLIGRAM, TID
     Route: 042
     Dates: start: 20220513, end: 20220517
  33. METHYLPREDNISOLONE [Concomitant]
     Active Substance: METHYLPREDNISOLONE
     Dosage: 60 MILLIGRAM, QD
     Route: 042
     Dates: start: 20220523, end: 20220523
  34. METHYLPREDNISOLONE [Concomitant]
     Active Substance: METHYLPREDNISOLONE
     Dosage: 40 MILLIGRAM, QD
     Route: 042
     Dates: start: 20220524, end: 20220524
  35. METHYLPREDNISOLONE [Concomitant]
     Active Substance: METHYLPREDNISOLONE
     Dosage: 30 MILLIGRAM, QD
     Route: 042
     Dates: start: 20220611, end: 20220616
  36. MIDAZOLAM [Concomitant]
     Active Substance: MIDAZOLAM
     Indication: Prophylaxis
     Dosage: FREQUENCY : TWICE
     Route: 048
     Dates: start: 20220616, end: 20220616
  37. MORPHINE [Concomitant]
     Active Substance: MORPHINE
     Indication: Prophylaxis
     Dosage: DOSE : 2 VIAL FREQUENCY : CONTINUOUS
     Route: 042
     Dates: start: 20220613, end: 20220616
  38. NYSTATIN [Concomitant]
     Active Substance: NYSTATIN
     Indication: Prophylaxis
     Dosage: UNKNOWN, QD
     Route: 048
     Dates: start: 20220508, end: 20220615
  39. OMEPRAZOLE [Concomitant]
     Active Substance: OMEPRAZOLE
     Indication: Prophylaxis
     Dosage: 20 MILLIGRAM, QD
     Route: 048
     Dates: start: 202205, end: 20220615
  40. PIPERACILLIN SODIUM\TAZOBACTAM SODIUM [Concomitant]
     Active Substance: PIPERACILLIN SODIUM\TAZOBACTAM SODIUM
     Indication: Prophylaxis
     Dosage: 4.5 GRAM, TID
     Route: 042
     Dates: start: 20220508, end: 20220517
  41. POTASSIUM CHLORIDE [Concomitant]
     Active Substance: POTASSIUM CHLORIDE
     Indication: Prophylaxis
     Dosage: DOSE : 2 TABLET
     Route: 048
     Dates: start: 20220515, end: 20220610
  42. RASBURICASE [Concomitant]
     Active Substance: RASBURICASE
     Indication: Prophylaxis
     Dosage: DOSE : 1 VIAL
     Route: 042
     Dates: start: 20220518, end: 20220601
  43. SIMVASTATIN [Concomitant]
     Active Substance: SIMVASTATIN
     Dosage: 20 MILLIGRAM, QD
     Route: 048
     Dates: start: 2022, end: 20220613
  44. SULFAMETHOXAZOLE\TRIMETHOPRIM [Concomitant]
     Active Substance: SULFAMETHOXAZOLE\TRIMETHOPRIM
     Indication: Prophylaxis
     Dosage: 960 MILLIGRAM, QOD
     Route: 048
     Dates: start: 20220509
  45. TERAZOSIN [Concomitant]
     Active Substance: TERAZOSIN HYDROCHLORIDE
     Dosage: 5 MILLIGRAM, QD
     Route: 048
     Dates: start: 2022, end: 20220614
  46. TRAMADOL [Concomitant]
     Active Substance: TRAMADOL\TRAMADOL HYDROCHLORIDE
     Indication: Prophylaxis
     Dosage: DOSE : 1 VIAL
     Route: 042
     Dates: start: 20220516, end: 20220519
  47. TRAMADOL [Concomitant]
     Active Substance: TRAMADOL\TRAMADOL HYDROCHLORIDE
     Indication: Abdominal pain
     Dosage: DOSE : 1 VIAL
     Route: 042
     Dates: start: 20220610, end: 20220616
  48. VALGANCICLOVIR [Concomitant]
     Active Substance: VALGANCICLOVIR
     Dosage: 450 MILLIGRAM, BID
     Route: 048
     Dates: start: 20220513, end: 20220608
  49. VANCOMYCIN [Concomitant]
     Active Substance: VANCOMYCIN
     Indication: Prophylaxis
     Dosage: 2 GRAM,  CONTINUOUS
     Route: 042
     Dates: start: 20220605, end: 20220614
  50. VITAMINS NOS [Concomitant]
     Active Substance: VITAMINS
     Indication: Prophylaxis
     Dosage: 1 VIAL, QD
     Route: 048
     Dates: start: 20220608, end: 20220612
  51. ZOLPIDEM [Concomitant]
     Active Substance: ZOLPIDEM TARTRATE
     Indication: Prophylaxis
     Dosage: 10 MILLIGRAM, QD
     Route: 048
     Dates: start: 20220508, end: 20220613

REACTIONS (1)
  - Immune effector cell-associated neurotoxicity syndrome [Not Recovered/Not Resolved]

NARRATIVE: CASE EVENT DATE: 20220601
